FAERS Safety Report 4431493-1 (Version None)
Quarter: 2004Q3

REPORT INFORMATION
  Report Type: 
  Country: None (occurrence: None)
  Receive Date: 20040824
  Receipt Date: 20040527
  Transmission Date: 20050211
  Serious: Yes (Hospitalization)
  Sender: FDA-Public Use
  Company Number: PHBS2004BR06976

PATIENT
  Age: 50 Year
  Sex: Female
  Weight: 110 kg

DRUGS (8)
  1. SANDOSTATIN LAR [Suspect]
     Indication: ACROMEGALY
     Dosage: 1 DF, QMO
     Route: 030
     Dates: start: 20020408
  2. RADIOTHERAPY [Suspect]
     Dosage: 4080CGY
     Dates: start: 20030716
  3. RADIOTHERAPY [Suspect]
     Dosage: 4080CGY
     Dates: start: 20030805
  4. NPH INSULIN [Concomitant]
  5. ENALAPRIL MALEATE [Concomitant]
  6. ALENDRONATE SODIUM [Concomitant]
     Dates: start: 20020801
  7. INTERFERON [Concomitant]
  8. RIBAVIRIN [Concomitant]
     Dosage: UNK, UNK
     Dates: start: 20020901, end: 20030601

REACTIONS (6)
  - AMAUROSIS [None]
  - EMPTY SELLA SYNDROME [None]
  - HEMIANOPIA [None]
  - OPTIC NEURITIS [None]
  - VISUAL ACUITY REDUCED [None]
  - VISUAL FIELD DEFECT [None]
